FAERS Safety Report 12451577 (Version 2)
Quarter: 2016Q4

REPORT INFORMATION
  Report Type: Spontaneous
  Country: US (occurrence: US)
  Receive Date: 20160609
  Receipt Date: 20161017
  Transmission Date: 20170207
  Serious: No
  Sender: FDA-Public Use
  Company Number: US-GLAXOSMITHKLINE-US2016082424

PATIENT
  Age: 54 Year
  Sex: Male

DRUGS (1)
  1. ABREVA [Suspect]
     Active Substance: DOCOSANOL
     Indication: ORAL HERPES
     Dosage: UNK
     Route: 061
     Dates: start: 20160606, end: 20160607

REACTIONS (3)
  - Incorrect drug administration duration [Unknown]
  - Lip pain [Unknown]
  - Oral discomfort [Unknown]

NARRATIVE: CASE EVENT DATE: 20160607
